FAERS Safety Report 16007200 (Version 3)
Quarter: 2019Q1

REPORT INFORMATION
  Report Type: Spontaneous
  Country: JP (occurrence: JP)
  Receive Date: 20190226
  Receipt Date: 20190318
  Transmission Date: 20190418
  Serious: Yes (Death)
  Sender: FDA-Public Use
  Company Number: JP-MALLINCKRODT-T201901882

PATIENT
  Age: 66 Year
  Sex: Male

DRUGS (4)
  1. CEFTRIAXONE NA [Concomitant]
     Active Substance: CEFTRIAXONE
     Indication: PRODUCT USED FOR UNKNOWN INDICATION
     Dosage: UNK
     Route: 042
  2. NICARDIPINE HYDROCHLORIDE. [Concomitant]
     Active Substance: NICARDIPINE HYDROCHLORIDE
     Indication: HYPERTENSION
     Dosage: UNK
     Route: 042
     Dates: start: 20190208, end: 20190208
  3. OFIRMEV [Suspect]
     Active Substance: ACETAMINOPHEN
     Indication: ANTIPYRESIS
     Dosage: UNK
     Route: 042
     Dates: start: 20190208, end: 20190208
  4. SOLACET F [Concomitant]
     Indication: PRODUCT USED FOR UNKNOWN INDICATION
     Dosage: UNK
     Route: 041

REACTIONS (2)
  - Blood pressure decreased [Fatal]
  - Hypoxic-ischaemic encephalopathy [Fatal]

NARRATIVE: CASE EVENT DATE: 20190208
